FAERS Safety Report 4558784-8 (Version None)
Quarter: 2005Q1

REPORT INFORMATION
  Report Type: 
  Country: None (occurrence: None)
  Receive Date: 20050121
  Receipt Date: 20050120
  Transmission Date: 20050727
  Serious: Yes (Other)
  Sender: FDA-Public Use
  Company Number: US-GLAXOSMITHKLINE-A0541607A

PATIENT
  Age: 12 Year
  Sex: Female

DRUGS (1)
  1. PAXIL [Suspect]

REACTIONS (1)
  - SUICIDE ATTEMPT [None]
